FAERS Safety Report 7439156-5 (Version None)
Quarter: 2011Q2

REPORT INFORMATION
  Report Type: 
  Country: None (occurrence: None)
  Receive Date: 20110427
  Receipt Date: 20110415
  Transmission Date: 20111010
  Serious: Yes (Other)
  Sender: FDA-Public Use
  Company Number: US-JNJFOC-20110408695

PATIENT
  Sex: Female
  Weight: 109.32 kg

DRUGS (14)
  1. DURAGESIC [Suspect]
     Indication: NEPHROLITHIASIS
     Route: 062
  2. FENTANYL [Suspect]
     Indication: NEPHROLITHIASIS
     Route: 062
  3. FENTANYL [Suspect]
     Indication: OSTEOARTHRITIS
     Route: 062
  4. FENTANYL [Suspect]
     Indication: RHEUMATOID ARTHRITIS
     Route: 062
  5. DURAGESIC [Suspect]
     Indication: BREAST CANCER
     Route: 062
  6. DURAGESIC [Suspect]
     Indication: BACK PAIN
     Route: 062
  7. FENTANYL [Suspect]
     Indication: BACK PAIN
     Route: 062
  8. DURAGESIC [Suspect]
     Indication: FIBROMYALGIA
     Route: 062
  9. FENTANYL [Suspect]
     Indication: FIBROMYALGIA
     Route: 062
  10. DURAGESIC [Suspect]
     Indication: GASTROOESOPHAGEAL REFLUX DISEASE
     Route: 062
  11. DURAGESIC [Suspect]
     Indication: RHEUMATOID ARTHRITIS
     Route: 062
  12. FENTANYL [Suspect]
     Indication: GASTROOESOPHAGEAL REFLUX DISEASE
     Route: 062
  13. FENTANYL [Suspect]
     Indication: BREAST CANCER
     Route: 062
  14. DURAGESIC [Suspect]
     Indication: OSTEOARTHRITIS
     Route: 062

REACTIONS (5)
  - HYPERHIDROSIS [None]
  - PRODUCT QUALITY ISSUE [None]
  - FEELING ABNORMAL [None]
  - DYSPNOEA [None]
  - BREAST CANCER [None]
